FAERS Safety Report 19321099 (Version 3)
Quarter: 2021Q3

REPORT INFORMATION
  Report Type: Spontaneous
  Country: JP (occurrence: JP)
  Receive Date: 20210527
  Receipt Date: 20210713
  Transmission Date: 20211014
  Serious: Yes (Other)
  Sender: FDA-Public Use
  Company Number: JP-LUNDBECK-DKLU3033548

PATIENT
  Age: 2 Year
  Sex: Male
  Weight: 8.79 kg

DRUGS (18)
  1. VIGABATRIN (FOR ORAL SOLUTION) [Suspect]
     Active Substance: VIGABATRIN
     Dosage: 125 MG, BID
     Route: 048
     Dates: start: 20210225, end: 20210420
  2. VIGABATRIN (FOR ORAL SOLUTION) [Suspect]
     Active Substance: VIGABATRIN
     Dosage: 330 MG, BID
     Route: 048
     Dates: start: 20191009, end: 20191011
  3. SODIUM VALPROATE [Concomitant]
     Active Substance: VALPROATE SODIUM
     Indication: INFANTILE SPASMS
     Dosage: DAILY DOSE: 450 MG
     Route: 048
  4. VIGABATRIN (FOR ORAL SOLUTION) [Suspect]
     Active Substance: VIGABATRIN
     Dosage: 250 MG, BID
     Route: 048
     Dates: start: 20201210, end: 20210224
  5. CLOBAZAM. [Concomitant]
     Active Substance: CLOBAZAM
     Dosage: DAILY DOSE: 3.0 MG
     Route: 048
     Dates: start: 20210421, end: 20210512
  6. LEVOCARNITINE. [Concomitant]
     Active Substance: LEVOCARNITINE
     Indication: PROPHYLAXIS
     Dosage: DAILY DOSE: 300 MG
     Route: 048
  7. VIGABATRIN (FOR ORAL SOLUTION) [Suspect]
     Active Substance: VIGABATRIN
     Dosage: 440 MG, BID
     Route: 048
     Dates: start: 20191012, end: 20200507
  8. SODIUM VALPROATE [Concomitant]
     Active Substance: VALPROATE SODIUM
     Dosage: DAILY DOSE: 400 MG
     Route: 048
     Dates: start: 20200218
  9. VIGABATRIN (FOR ORAL SOLUTION) [Suspect]
     Active Substance: VIGABATRIN
     Dosage: 500 MG, BID
     Route: 048
     Dates: start: 20200508, end: 20201209
  10. CLOBAZAM. [Concomitant]
     Active Substance: CLOBAZAM
     Dosage: DAILY DOSE: 4.0 MG
     Route: 048
     Dates: start: 20210513
  11. LEVOCARNITINE. [Concomitant]
     Active Substance: LEVOCARNITINE
     Indication: INVESTIGATION
  12. VIGABATRIN (FOR ORAL SOLUTION) [Suspect]
     Active Substance: VIGABATRIN
     Dosage: 62.5 MG, BID
     Route: 048
     Dates: start: 20210421, end: 20210512
  13. CLOBAZAM. [Concomitant]
     Active Substance: CLOBAZAM
     Dosage: DAILY DOSE: 2.0 MG
     Route: 048
     Dates: start: 20201210, end: 20210420
  14. LEVOTHYROXINE SODIUM. [Concomitant]
     Active Substance: LEVOTHYROXINE SODIUM
     Indication: PRODUCT USED FOR UNKNOWN INDICATION
     Dosage: DAILY DOSE: 25 UG
     Route: 048
  15. CLOBAZAM. [Concomitant]
     Active Substance: CLOBAZAM
     Dosage: DAILY DOSE: 1.0 MG
     Route: 048
     Dates: start: 20201112, end: 20201209
  16. TOPIRAMATE. [Concomitant]
     Active Substance: TOPIRAMATE
     Indication: INFANTILE SPASMS
     Dosage: DAILY DOSE: 70 MG
     Route: 048
  17. VIGABATRIN (FOR ORAL SOLUTION) [Suspect]
     Active Substance: VIGABATRIN
     Indication: INFANTILE SPASMS
     Dosage: 220 MG, BID
     Route: 048
     Dates: start: 20191005, end: 20191008
  18. CLOBAZAM. [Concomitant]
     Active Substance: CLOBAZAM
     Indication: INFANTILE SPASMS
     Dosage: DAILY DOSE: 0.5 MG
     Route: 048
     Dates: start: 20201015, end: 20201111

REACTIONS (2)
  - Drug ineffective [Unknown]
  - Cataract [Not Recovered/Not Resolved]

NARRATIVE: CASE EVENT DATE: 20201026
